FAERS Safety Report 5339688-X (Version None)
Quarter: 2007Q2

REPORT INFORMATION
  Report Type: 
  Country: None (occurrence: None)
  Receive Date: 20070404
  Receipt Date: 20060918
  Transmission Date: 20071010
  Serious: Yes (Other)
  Sender: FDA-Public Use
  Company Number: 2006112171

PATIENT
  Age: 34 Year
  Sex: Male
  Weight: 63.9572 kg

DRUGS (3)
  1. GEODON [Suspect]
     Indication: BIPOLAR DISORDER
     Dosage: 140 MG
     Dates: start: 20060306, end: 20060913
  2. DEPAKOTE [Concomitant]
  3. AVANDAMET [Concomitant]

REACTIONS (1)
  - PRIAPISM [None]
